FAERS Safety Report 23293426 (Version 2)
Quarter: 2024Q2

REPORT INFORMATION
  Report Type: Spontaneous
  Country: ID (occurrence: ID)
  Receive Date: 20231213
  Receipt Date: 20240531
  Transmission Date: 20240716
  Serious: Yes (Other)
  Sender: FDA-Public Use
  Company Number: ID-SUN PHARMACEUTICAL INDUSTRIES LTD-2023R1-418854

PATIENT
  Age: 9 Year
  Sex: Female

DRUGS (1)
  1. DEXAMETHASONE [Suspect]
     Active Substance: DEXAMETHASONE
     Indication: Dermatitis atopic
     Dosage: 0.5 MILLIGRAM (ONCE TO TWICE A DAY )
     Route: 048

REACTIONS (2)
  - Drug ineffective [Unknown]
  - Cushing^s syndrome [Unknown]
